FAERS Safety Report 16260205 (Version 2)
Quarter: 2020Q1

REPORT INFORMATION
  Report Type: Report from Study
  Country: US (occurrence: US)
  Receive Date: 20190501
  Receipt Date: 20200115
  Transmission Date: 20200409
  Serious: Yes (Death)
  Sender: FDA-Public Use
  Company Number: US-TAIHO ONCOLOGY  INC-EU-2019-01355

PATIENT
  Age: 43 Year
  Sex: Male
  Weight: 80.81 kg

DRUGS (12)
  1. ONDANSETRON [Concomitant]
     Active Substance: ONDANSETRON
     Dosage: NI
  2. AMLODIPINE [Concomitant]
     Active Substance: AMLODIPINE BESYLATE
     Dosage: NI
  3. MORPHINE [Concomitant]
     Active Substance: MORPHINE
     Dosage: NI
  4. METOPROLOL TARTRATE. [Concomitant]
     Active Substance: METOPROLOL TARTRATE
     Dosage: NI
  5. AUGMENTIN [Concomitant]
     Active Substance: AMOXICILLIN\CLAVULANATE POTASSIUM
     Dosage: NI
  6. SUCRALFATE. [Concomitant]
     Active Substance: SUCRALFATE
     Dosage: NI
  7. LONSURF [Suspect]
     Active Substance: TIPIRACIL HYDROCHLORIDE\TRIFLURIDINE
     Indication: METASTATIC GASTRIC CANCER
     Dosage: LONSURF STRENGH: 15MG + 20MG. CURRENT CYCLE UNKNOWN.
     Route: 048
     Dates: start: 20190304
  8. LISINOPRIL. [Concomitant]
     Active Substance: LISINOPRIL
     Dosage: NI
  9. DULOXETINE. [Concomitant]
     Active Substance: DULOXETINE
     Dosage: NI
  10. OXYCODONE [Concomitant]
     Active Substance: OXYCODONE
     Dosage: NI
  11. HYDROCHLOROTHIAZIDE. [Concomitant]
     Active Substance: HYDROCHLOROTHIAZIDE
     Dosage: NI
  12. LYRICA [Concomitant]
     Active Substance: PREGABALIN
     Dosage: NI

REACTIONS (2)
  - Inappropriate schedule of product administration [Unknown]
  - Death [Fatal]

NARRATIVE: CASE EVENT DATE: 20190304
